FAERS Safety Report 7231348-3 (Version None)
Quarter: 2011Q1

REPORT INFORMATION
  Report Type: 
  Country: None (occurrence: None)
  Receive Date: 20110118
  Receipt Date: 20110111
  Transmission Date: 20110831
  Serious: Yes (Life-Threatening)
  Sender: FDA-Public Use
  Company Number: MX-GENZYME-CLOF-1001406

PATIENT
  Age: 4 Year

DRUGS (1)
  1. CLOLAR [Suspect]
     Indication: ACUTE LYMPHOCYTIC LEUKAEMIA
     Route: 042

REACTIONS (3)
  - LUNG DISORDER [None]
  - CAPILLARY LEAK SYNDROME [None]
  - INFECTION [None]
